FAERS Safety Report 7335140-0 (Version None)
Quarter: 2011Q1

REPORT INFORMATION
  Report Type: 
  Country: None (occurrence: None)
  Receive Date: 20110307
  Receipt Date: 20110301
  Transmission Date: 20110831
  Serious: Yes (Death, Hospitalization)
  Sender: FDA-Public Use
  Company Number: US-JNJFOC-20110301599

PATIENT
  Sex: Male
  Weight: 52.16 kg

DRUGS (1)
  1. FENTANYL-100 [Suspect]
     Indication: PAIN
     Dosage: NDC: 0781-7112-55
     Route: 062

REACTIONS (2)
  - HOSPITALISATION [None]
  - OESOPHAGEAL CARCINOMA [None]
